FAERS Safety Report 5139040-6 (Version None)
Quarter: 2006Q4

REPORT INFORMATION
  Report Type: 
  Country: None (occurrence: None)
  Receive Date: 20061030
  Receipt Date: 20060612
  Transmission Date: 20070319
  Serious: No
  Sender: FDA-Public Use
  Company Number: US-GLAXOSMITHKLINE-A0608647A

PATIENT
  Age: 69 Year
  Sex: Female

DRUGS (7)
  1. ADVAIR HFA [Suspect]
     Indication: CHRONIC OBSTRUCTIVE PULMONARY DISEASE
     Dosage: 1PUFF TWICE PER DAY
     Route: 055
     Dates: start: 20030101
  2. NYSTATIN [Concomitant]
  3. CLOTRIMAZOLE [Concomitant]
  4. DITROPAN [Concomitant]
  5. LASIX [Concomitant]
  6. NITROFURANTOIN MACROCRYSTAL [Concomitant]
  7. DESMOPRESSIN [Concomitant]

REACTIONS (1)
  - FUNGAL INFECTION [None]
